FAERS Safety Report 5475946-6 (Version None)
Quarter: 2007Q4

REPORT INFORMATION
  Report Type: 
  Country: None (occurrence: None)
  Receive Date: 20071003
  Receipt Date: 20070924
  Transmission Date: 20080405
  Serious: Yes (Hospitalization, Other)
  Sender: FDA-Public Use
  Company Number: US-ROCHE-512705

PATIENT
  Age: 55 Year
  Sex: Male
  Weight: 82.1 kg

DRUGS (7)
  1. FUZEON [Suspect]
     Route: 058
     Dates: start: 20070221, end: 20070801
  2. EPZICOM [Suspect]
     Route: 048
     Dates: start: 20070221, end: 20070801
  3. EPZICOM [Suspect]
     Route: 048
     Dates: start: 20070824
  4. UNSPECIFIED DRUG [Suspect]
     Dosage: REPORTED AS RALTEGRAVIR/ MK-0518
     Route: 048
     Dates: start: 20070221, end: 20070801
  5. UNSPECIFIED DRUG [Suspect]
     Route: 048
     Dates: start: 20070824
  6. UNSPECIFIED DRUG [Suspect]
     Dosage: REPORTED AS DAVURAVIR/PREZISTA
     Route: 048
     Dates: start: 20070221, end: 20070801
  7. UNSPECIFIED DRUG [Suspect]
     Route: 048
     Dates: start: 20070824

REACTIONS (2)
  - MILLER FISHER SYNDROME [None]
  - PNEUMONITIS [None]
